FAERS Safety Report 19109645 (Version 1)
Quarter: 2021Q2

REPORT INFORMATION
  Report Type: Spontaneous
  Country: US (occurrence: US)
  Receive Date: 20210409
  Receipt Date: 20210409
  Transmission Date: 20210717
  Serious: No
  Sender: FDA-Public Use
  Company Number: US-DRREDDYS-USA/USA/21/0133603

PATIENT
  Sex: Male

DRUGS (1)
  1. SILVER SULFADIAZINE. [Suspect]
     Active Substance: SILVER SULFADIAZINE
     Indication: PRODUCT USED FOR UNKNOWN INDICATION
     Route: 061

REACTIONS (6)
  - Skin exfoliation [Unknown]
  - Drug ineffective [Unknown]
  - Photosensitivity reaction [Unknown]
  - Product use in unapproved indication [Unknown]
  - Blister [Unknown]
  - Product quality issue [Unknown]
